FAERS Safety Report 8677927 (Version 3)
Quarter: 2013Q1

REPORT INFORMATION
  Report Type: Spontaneous
  Country: SE (occurrence: SE)
  Receive Date: 20120723
  Receipt Date: 20130327
  Transmission Date: 20140127
  Serious: Yes (Hospitalization)
  Sender: FDA-Public Use
  Company Number: SE-ROCHE-1089030

PATIENT
  Age: 68 Year
  Sex: Female

DRUGS (3)
  1. MABTHERA [Suspect]
     Indication: RHEUMATOID ARTHRITIS
     Route: 042
     Dates: start: 20111117, end: 20120401
  2. PREDNISOLON [Concomitant]
     Dosage: DOSAGE- 1 GMN
     Route: 065
     Dates: start: 1997
  3. METHOTREXATE [Concomitant]
     Dosage: AS REPORTED: 7.5-5MG
     Route: 065
     Dates: start: 1997

REACTIONS (1)
  - Breast cancer [Unknown]
